FAERS Safety Report 21923198 (Version 1)
Quarter: 2023Q1

REPORT INFORMATION
  Report Type: Spontaneous
  Country: None (occurrence: US)
  Receive Date: 20230129
  Receipt Date: 20230129
  Transmission Date: 20230418
  Serious: No
  Sender: FDA-Public Use
  Company Number: US-Vitruvias Therapeutics-2137221

PATIENT

DRUGS (1)
  1. POTASSIUM CHLORIDE [Suspect]
     Active Substance: POTASSIUM CHLORIDE

REACTIONS (6)
  - Hypoaesthesia [None]
  - Swelling face [None]
  - Lip swelling [None]
  - Paraesthesia [None]
  - Paraesthesia oral [None]
  - Paraesthesia [None]
